FAERS Safety Report 16729789 (Version 1)
Quarter: 2019Q3

REPORT INFORMATION
  Report Type: Spontaneous
  Country: GB (occurrence: GB)
  Receive Date: 20190822
  Receipt Date: 20190822
  Transmission Date: 20191005
  Serious: Yes (Other)
  Sender: FDA-Public Use
  Company Number: GB-TEVA-2019-GB-1094036

PATIENT
  Age: 57 Year
  Sex: Male
  Weight: 130 kg

DRUGS (16)
  1. INDIPAM SR [Concomitant]
  2. LANSOPRAZOLE. [Concomitant]
     Active Substance: LANSOPRAZOLE
  3. AMITRIPTYLINE [Concomitant]
     Active Substance: AMITRIPTYLINE
  4. ORAMORPH [Concomitant]
     Active Substance: MORPHINE SULFATE
  5. TRAMADOL. [Concomitant]
     Active Substance: TRAMADOL
  6. ATORVASTATIN [Concomitant]
     Active Substance: ATORVASTATIN
  7. ALOGLIPTIN. [Concomitant]
     Active Substance: ALOGLIPTIN
  8. WARFARIN [Concomitant]
     Active Substance: WARFARIN
  9. DOXAZOSIN [Suspect]
     Active Substance: DOXAZOSIN MESYLATE
     Indication: HYPERTENSION
     Dosage: 4 MG
     Route: 048
     Dates: start: 2018
  10. PARACETAMOL [Concomitant]
     Active Substance: ACETAMINOPHEN
  11. GLICLAZIDE [Concomitant]
     Active Substance: GLICLAZIDE
  12. METFORMIN [Concomitant]
     Active Substance: METFORMIN HYDROCHLORIDE
  13. SPIRONOLACTONE. [Suspect]
     Active Substance: SPIRONOLACTONE
     Indication: HYPERTENSION
     Dosage: 50 MG
     Route: 048
     Dates: start: 2018
  14. LERCANIDIPINE [Concomitant]
     Active Substance: LERCANIDIPINE
  15. PROPRANOLOL [Concomitant]
     Active Substance: PROPRANOLOL HYDROCHLORIDE
  16. RAMIPRIL. [Concomitant]
     Active Substance: RAMIPRIL

REACTIONS (3)
  - Breast pain [Not Recovered/Not Resolved]
  - Mastitis [Unknown]
  - Breast mass [Unknown]

NARRATIVE: CASE EVENT DATE: 201905
